FAERS Safety Report 26082655 (Version 1)
Quarter: 2025Q4

REPORT INFORMATION
  Report Type: Spontaneous
  Country: JP (occurrence: JP)
  Receive Date: 20251124
  Receipt Date: 20251124
  Transmission Date: 20260117
  Serious: Yes (Other)
  Sender: MERCK SHARP & DOHME LLC
  Company Number: JP-009507513-2352832

PATIENT
  Age: 7 Decade
  Sex: Female

DRUGS (3)
  1. KEYTRUDA [Suspect]
     Active Substance: PEMBROLIZUMAB
     Indication: Uterine cancer
     Route: 041
  2. LENVIMA [Suspect]
     Active Substance: LENVATINIB
     Indication: Uterine cancer
     Route: 048
  3. LENVIMA [Suspect]
     Active Substance: LENVATINIB
     Indication: Uterine cancer
     Dosage: LENVIMA DOSE REDUCED
     Route: 048

REACTIONS (6)
  - Lymph node tuberculosis [Unknown]
  - Hypothyroidism [Unknown]
  - Electrolyte imbalance [Unknown]
  - Hypomagnesaemia [Unknown]
  - Thyroiditis [Unknown]
  - Decreased appetite [Recovered/Resolved]
